FAERS Safety Report 18587688 (Version 3)
Quarter: 2023Q4

REPORT INFORMATION
  Report Type: Report from Study
  Country: US (occurrence: US)
  Receive Date: 20201207
  Receipt Date: 20231018
  Transmission Date: 20240110
  Serious: Yes (Death, Hospitalization, Other)
  Sender: FDA-Public Use
  Company Number: US-BIOGEN-2020BI00952792

PATIENT

DRUGS (1)
  1. TYSABRI [Suspect]
     Active Substance: NATALIZUMAB
     Indication: Disease risk factor
     Route: 050

REACTIONS (7)
  - Acute graft versus host disease [Fatal]
  - Infection [Fatal]
  - Cytomegalovirus colitis [Unknown]
  - Klebsiella sepsis [Unknown]
  - Enterococcal sepsis [Unknown]
  - Pneumonia cytomegaloviral [Unknown]
  - Depression [Unknown]
